FAERS Safety Report 8512358-2 (Version None)
Quarter: 2012Q3

REPORT INFORMATION
  Report Type: 
  Country: None (occurrence: None)
  Receive Date: 20120716
  Receipt Date: 20120711
  Transmission Date: 20120928
  Serious: Yes (Other)
  Sender: FDA-Public Use
  Company Number: PHEH2012US013597

PATIENT
  Sex: Male

DRUGS (2)
  1. VALTURNA [Suspect]
  2. METFORMIN HYDROCHLORIDE [Suspect]
     Dosage: UNK

REACTIONS (3)
  - TYPE 2 DIABETES MELLITUS [None]
  - BLOOD CREATININE INCREASED [None]
  - RENAL FAILURE [None]
